FAERS Safety Report 5704328-4 (Version None)
Quarter: 2008Q2

REPORT INFORMATION
  Report Type: 
  Country: None (occurrence: None)
  Receive Date: 20080414
  Receipt Date: 20080402
  Transmission Date: 20081010
  Serious: Yes (Hospitalization)
  Sender: FDA-Public Use
  Company Number: US-AMGEN-QUU272619

PATIENT
  Sex: Male

DRUGS (3)
  1. KEPIVANCE [Suspect]
     Indication: DRUG USE FOR UNKNOWN INDICATION
  2. METHOTREXATE [Concomitant]
  3. CYCLOSPORINE [Concomitant]

REACTIONS (4)
  - GRAFT VERSUS HOST DISEASE [None]
  - RASH ERYTHEMATOUS [None]
  - SKIN OEDEMA [None]
  - STOMATITIS [None]
